FAERS Safety Report 6534826-5 (Version None)
Quarter: 2010Q1

REPORT INFORMATION
  Report Type: 
  Country: None (occurrence: None)
  Receive Date: 20100112
  Receipt Date: 20091228
  Transmission Date: 20100710
  Serious: Yes (Hospitalization)
  Sender: FDA-Public Use
  Company Number: FR-GENENTECH-296583

PATIENT
  Sex: Male

DRUGS (12)
  1. RITUXIMAB [Suspect]
     Indication: MANTLE CELL LYMPHOMA
     Dosage: 750 MG, QAM
     Route: 042
     Dates: start: 20091106
  2. RITUXIMAB [Suspect]
     Dosage: 750 MG, QAM
     Route: 042
     Dates: start: 20091204
  3. CYTARABINE [Suspect]
     Indication: MANTLE CELL LYMPHOMA
     Dosage: 4 G, QAM
     Route: 042
     Dates: start: 20091103, end: 20091105
  4. CYTARABINE [Suspect]
     Dosage: 4 G, QAM
     Route: 042
     Dates: start: 20091202, end: 20091203
  5. CISPLATIN [Suspect]
     Indication: MANTLE CELL LYMPHOMA
     Dosage: 200 MG, QAM
     Route: 042
     Dates: start: 20091103, end: 20091105
  6. CISPLATIN [Suspect]
     Dosage: 200 MG, QAM
     Route: 042
     Dates: start: 20091201
  7. DEXAMETHASONE [Suspect]
     Indication: MANTLE CELL LYMPHOMA
     Dosage: 40 MG, QAM
     Route: 065
     Dates: start: 20091103, end: 20091106
  8. DEXAMETHASONE [Suspect]
     Dosage: 40 MG, QAM
     Route: 065
     Dates: start: 20091130, end: 20091204
  9. RAMIPRIL [Concomitant]
     Indication: HYPERTENSION
     Dosage: 2.5 MG, QAM
     Route: 048
  10. PRAVASTATIN [Concomitant]
     Indication: DYSLIPIDAEMIA
     Dosage: 20 MG, QAM
     Route: 048
  11. COSOPT [Concomitant]
     Indication: GLAUCOMA
     Dosage: UNK
     Route: 031
  12. GRANOCYTE [Concomitant]
     Indication: PROPHYLAXIS
     Dosage: 34 IU, UNK
     Route: 058
     Dates: start: 20091205

REACTIONS (2)
  - FEBRILE BONE MARROW APLASIA [None]
  - FEBRILE NEUTROPENIA [None]
